FAERS Safety Report 5194839-5 (Version None)
Quarter: 2006Q4

REPORT INFORMATION
  Report Type: 
  Country: None (occurrence: None)
  Receive Date: 20061229
  Receipt Date: 20061227
  Transmission Date: 20070319
  Serious: Yes (Life-Threatening)
  Sender: FDA-Public Use
  Company Number: 2006GB02391

PATIENT
  Age: 46 Year
  Sex: Female

DRUGS (18)
  1. PROPOFOL [Suspect]
     Indication: GENERAL ANAESTHESIA
     Route: 042
  2. AMOXICILLIN [Suspect]
     Indication: ANTIBIOTIC PROPHYLAXIS
     Route: 065
  3. DICLOFENAC SODIUM [Suspect]
     Route: 042
  4. EPHEDRINE [Suspect]
     Indication: HYPOTENSION
     Route: 065
  5. FENTANYL [Suspect]
     Indication: GENERAL ANAESTHESIA
     Route: 065
  6. GLYCOPYRROLATE [Suspect]
     Indication: ANAESTHESIA REVERSAL
     Route: 065
  7. ISOFLURANE [Suspect]
     Indication: GENERAL ANAESTHESIA
     Route: 065
  8. MORPHINE [Suspect]
     Indication: GENERAL ANAESTHESIA
     Route: 065
  9. NEOSTIGMINE [Suspect]
     Indication: ANAESTHESIA REVERSAL
     Route: 065
  10. NITROUS OXIDE W/ OXYGEN [Suspect]
     Indication: GENERAL ANAESTHESIA
     Route: 065
  11. ONDANSETRON [Suspect]
     Route: 065
  12. OXYGEN [Suspect]
     Indication: GENERAL ANAESTHESIA
     Route: 065
  13. VECURONIUM BROMIDE [Suspect]
     Indication: GENERAL ANAESTHESIA
     Route: 065
  14. CO-DYDRAMOL [Concomitant]
  15. DIAZEPAM [Concomitant]
  16. ESCITALOPRAM OXALATE [Concomitant]
  17. NORETHINDRONE ACETATE [Concomitant]
  18. ZOLPIDEM TARTRATE [Concomitant]

REACTIONS (9)
  - ABDOMINAL DISTENSION [None]
  - ACUTE HEPATIC FAILURE [None]
  - COAGULOPATHY [None]
  - HEPATOMEGALY [None]
  - OXYGEN SATURATION DECREASED [None]
  - SOMNOLENCE [None]
  - STRIDOR [None]
  - TACHYCARDIA [None]
  - TACHYPNOEA [None]
